FAERS Safety Report 7583140-8 (Version None)
Quarter: 2011Q2

REPORT INFORMATION
  Report Type: 
  Country: None (occurrence: None)
  Receive Date: 20110630
  Receipt Date: 20110627
  Transmission Date: 20111010
  Serious: Yes (Other)
  Sender: FDA-Public Use
  Company Number: CA-ABBOTT-11P-028-0726540-00

PATIENT
  Sex: Female
  Weight: 76.272 kg

DRUGS (2)
  1. HUMIRA [Suspect]
     Dates: start: 20110530
  2. HUMIRA [Suspect]
     Indication: RHEUMATOID ARTHRITIS
     Route: 058
     Dates: start: 20090301, end: 20110429

REACTIONS (3)
  - CARPAL TUNNEL SYNDROME [None]
  - PROCEDURAL PAIN [None]
  - JOINT SURGERY [None]
